FAERS Safety Report 5184155-X (Version None)
Quarter: 2006Q4

REPORT INFORMATION
  Report Type: 
  Country: None (occurrence: None)
  Receive Date: 20061220
  Receipt Date: 20060214
  Transmission Date: 20070319
  Serious: No
  Sender: FDA-Public Use
  Company Number: US-GLAXOSMITHKLINE-A0593603A

PATIENT
  Age: 33 Year
  Sex: Male

DRUGS (2)
  1. NICODERM CQ [Suspect]
     Route: 062
  2. NICOTINE GUM [Concomitant]

REACTIONS (7)
  - DISTURBANCE IN ATTENTION [None]
  - FEELING JITTERY [None]
  - INTENTIONAL DRUG MISUSE [None]
  - MALAISE [None]
  - NAUSEA [None]
  - OVERDOSE [None]
  - VOMITING [None]
